FAERS Safety Report 19858459 (Version 1)
Quarter: 2021Q3

REPORT INFORMATION
  Report Type: Other
  Country: US (occurrence: US)
  Receive Date: 20210921
  Receipt Date: 20210921
  Transmission Date: 20211014
  Serious: Yes (Hospitalization)
  Sender: FDA-Public Use
  Company Number: US-INTERCEPT-PM2021002383

PATIENT
  Age: 76 Year
  Sex: Female
  Weight: 93.6 kg

DRUGS (11)
  1. NASONEX [Concomitant]
     Active Substance: MOMETASONE FUROATE
     Dosage: UNK, QD 2 SPRAYS BY BOTH NOSTRILS ROUTE DAILY
     Route: 045
  2. PROVENTIL [Concomitant]
     Active Substance: ALBUTEROL
     Dosage: UNK, Q6H, AS NEEDED
     Dates: start: 20190320
  3. FLONASE [Concomitant]
     Active Substance: FLUTICASONE PROPIONATE
     Dosage: UNK
     Route: 045
     Dates: start: 20171204
  4. OCALIVA [Suspect]
     Active Substance: OBETICHOLIC ACID
     Indication: PRIMARY BILIARY CHOLANGITIS
     Dosage: 5 MILLIGRAM, QD
     Route: 048
     Dates: start: 20180913
  5. MAGNESIUM OXIDE. [Concomitant]
     Active Substance: MAGNESIUM OXIDE
     Dosage: 2 DOSAGE FORM, QD
     Route: 048
     Dates: start: 20171105
  6. ANORO ELLIPTA [Concomitant]
     Active Substance: UMECLIDINIUM BROMIDE\VILANTEROL TRIFENATATE
     Dosage: 62.5?25 MG, INHALE ONE PUFF INTO LUNGS DAILY
     Dates: start: 20190624
  7. ULTRAM [Concomitant]
     Active Substance: TRAMADOL HYDROCHLORIDE
     Dosage: UNK
     Dates: start: 20171128
  8. ACTIGALL [Concomitant]
     Active Substance: URSODIOL
     Dosage: UNK
  9. LEXAPRO [Concomitant]
     Active Substance: ESCITALOPRAM OXALATE
     Dosage: 10 MILLIGRAM, QD
     Route: 048
  10. SYNTHROID [Concomitant]
     Active Substance: LEVOTHYROXINE SODIUM
     Dosage: 150 MICROGRAM, QD
     Route: 048
     Dates: end: 20210113
  11. SINGULAIR [Concomitant]
     Active Substance: MONTELUKAST SODIUM
     Dosage: 10 MILLIGRAM, QD
     Route: 048

REACTIONS (11)
  - Flatulence [Unknown]
  - Chronic obstructive pulmonary disease [Recovering/Resolving]
  - Wheezing [Unknown]
  - Blood alkaline phosphatase increased [Unknown]
  - Fatigue [Unknown]
  - Pneumonia [Recovering/Resolving]
  - Gastrooesophageal reflux disease [Unknown]
  - Pruritus [Unknown]
  - Dry eye [Unknown]
  - Dyspnoea [Unknown]
  - Overweight [Unknown]

NARRATIVE: CASE EVENT DATE: 201903
